FAERS Safety Report 4279739-7 (Version None)
Quarter: 2004Q1

REPORT INFORMATION
  Report Type: 
  Country: None (occurrence: None)
  Receive Date: 20040127
  Receipt Date: 20040120
  Transmission Date: 20041129
  Serious: Yes (Hospitalization)
  Sender: FDA-Public Use
  Company Number: WAES 0401DNK00020

PATIENT
  Age: 60 Year
  Sex: Male

DRUGS (4)
  1. ASPIRIN [Concomitant]
     Indication: ARTERIOSCLEROSIS
     Route: 048
  2. PRAVASTATIN SODIUM [Concomitant]
     Indication: HYPERCHOLESTEROLAEMIA
     Route: 048
  3. VIOXX [Suspect]
     Indication: POST PROCEDURAL PAIN
     Route: 048
     Dates: start: 20030123, end: 20030123
  4. VIOXX [Suspect]
     Route: 048
     Dates: start: 20030124, end: 20030126

REACTIONS (1)
  - ANGINA PECTORIS [None]
